FAERS Safety Report 16910923 (Version 1)
Quarter: 2019Q4

REPORT INFORMATION
  Report Type: Spontaneous
  Country: TW (occurrence: TW)
  Receive Date: 20191012
  Receipt Date: 20191012
  Transmission Date: 20200122
  Serious: Yes (Other)
  Sender: FDA-Public Use
  Company Number: PHHY2019TW227692

PATIENT
  Age: 45 Year
  Sex: Female

DRUGS (15)
  1. CALCIUM FOLINATE [Suspect]
     Active Substance: LEUCOVORIN CALCIUM
     Indication: COLON CANCER
     Dosage: UNK
     Route: 065
     Dates: start: 20180911, end: 20190124
  2. IRINOTECAN [Suspect]
     Active Substance: IRINOTECAN
     Indication: COLON CANCER
     Route: 065
     Dates: start: 20190731
  3. BEVACIZUMAB. [Suspect]
     Active Substance: BEVACIZUMAB
     Indication: COLON CANCER
     Dosage: UNK
     Route: 065
     Dates: start: 20180911, end: 20190124
  4. CALCIUM FOLINATE [Suspect]
     Active Substance: LEUCOVORIN CALCIUM
     Dosage: UNK
     Route: 065
     Dates: start: 20190216, end: 20190610
  5. CETUXIMAB. [Suspect]
     Active Substance: CETUXIMAB
     Dosage: UNK
     Route: 065
     Dates: start: 20190731
  6. CAPECITABINE. [Suspect]
     Active Substance: CAPECITABINE
     Indication: COLON CANCER
     Dosage: UNK
     Route: 065
     Dates: start: 20190629
  7. CETUXIMAB. [Suspect]
     Active Substance: CETUXIMAB
     Dosage: UNK
     Route: 065
     Dates: start: 20190715
  8. 5-FLUOROURACIL [Suspect]
     Active Substance: FLUOROURACIL
     Indication: COLON CANCER
     Dosage: UNK
     Route: 065
     Dates: start: 20180911, end: 20190124
  9. IRINOTECAN [Suspect]
     Active Substance: IRINOTECAN
     Indication: COLON CANCER
     Dosage: UNK
     Route: 065
     Dates: start: 20180911, end: 20190124
  10. CAPECITABINE. [Suspect]
     Active Substance: CAPECITABINE
     Indication: COLON CANCER
     Dosage: UNK
     Route: 065
     Dates: start: 20190731
  11. OXALIPLATIN. [Suspect]
     Active Substance: OXALIPLATIN
     Indication: COLON CANCER
     Dosage: UNK
     Route: 065
     Dates: start: 20190216, end: 20190610
  12. CETUXIMAB. [Suspect]
     Active Substance: CETUXIMAB
     Indication: COLON CANCER
     Dosage: UNK
     Route: 065
     Dates: start: 20190629
  13. CAPECITABINE. [Suspect]
     Active Substance: CAPECITABINE
     Indication: COLON CANCER
     Dosage: UNK
     Route: 065
     Dates: start: 20190715
  14. IRINOTECAN [Suspect]
     Active Substance: IRINOTECAN
     Indication: COLON CANCER
     Route: 065
     Dates: start: 20190629
  15. IRINOTECAN [Suspect]
     Active Substance: IRINOTECAN
     Indication: COLON CANCER
     Route: 065
     Dates: start: 20190715

REACTIONS (4)
  - Malignant gastrointestinal obstruction [Unknown]
  - Metastases to bone [Unknown]
  - Colon cancer [Unknown]
  - Malignant neoplasm progression [Unknown]
